FAERS Safety Report 15892202 (Version 1)
Quarter: 2019Q1

REPORT INFORMATION
  Report Type: Report from Study
  Country: US (occurrence: US)
  Receive Date: 20190130
  Receipt Date: 20190130
  Transmission Date: 20190417
  Serious: No
  Sender: FDA-Public Use
  Company Number: US-EXELIXIS-CABO-18014427

PATIENT
  Sex: Male

DRUGS (1)
  1. CABOMETYX [Suspect]
     Active Substance: CABOZANTINIB S-MALATE
     Indication: RENAL CANCER
     Dosage: 40 MG, QD
     Route: 048
     Dates: start: 20180213

REACTIONS (10)
  - Insomnia [Unknown]
  - Renal failure [Unknown]
  - Blood pressure fluctuation [Unknown]
  - Pain [Unknown]
  - Haematocrit decreased [Unknown]
  - Malignant neoplasm progression [Unknown]
  - Oxygen saturation decreased [Unknown]
  - Haemoglobin decreased [Unknown]
  - Productive cough [Unknown]
  - Neutrophil count increased [Unknown]
